FAERS Safety Report 4463146-8 (Version None)
Quarter: 2004Q3

REPORT INFORMATION
  Report Type: 
  Country: None (occurrence: None)
  Receive Date: 20040928
  Receipt Date: 20040923
  Transmission Date: 20050211
  Serious: Yes (Hospitalization)
  Sender: FDA-Public Use
  Company Number: PERI00204003460

PATIENT
  Age: 95 Year
  Sex: Female
  Weight: 51 kg

DRUGS (5)
  1. COVERSYL(PERINDOPRIL) [Suspect]
     Indication: ESSENTIAL HYPERTENSION
     Dosage: 4 MG QD PO
     Route: 048
     Dates: end: 20040826
  2. AMIODARONE HCL [Suspect]
     Indication: ILL-DEFINED DISORDER
     Dosage: 3 DF PO
     Route: 048
     Dates: end: 20040826
  3. ALDALIX [Suspect]
     Indication: ESSENTIAL HYPERTENSION
     Dosage: 1 DF QD PO
     Route: 048
     Dates: end: 20040826
  4. DIGOXIN [Concomitant]
     Indication: ATRIAL FIBRILLATION
     Dosage: 0.125 NG QD PO
     Route: 048
     Dates: end: 20040826
  5. DI-ANTALVIC     (PARACETAMOL) [Concomitant]

REACTIONS (7)
  - ATRIOVENTRICULAR BLOCK COMPLETE [None]
  - BRADYCARDIA [None]
  - CARDIOACTIVE DRUG LEVEL INCREASED [None]
  - DRUG INTERACTION [None]
  - FALL [None]
  - HEMIPARESIS [None]
  - RENAL FAILURE [None]
